FAERS Safety Report 17271424 (Version 1)
Quarter: 2020Q1

REPORT INFORMATION
  Report Type: Spontaneous
  Country: US (occurrence: US)
  Receive Date: 20200115
  Receipt Date: 20200115
  Transmission Date: 20200409
  Serious: No
  Sender: FDA-Public Use
  Company Number: US-JNJFOC-20200110418

PATIENT
  Age: 8 Year
  Sex: Male
  Weight: 40.86 kg

DRUGS (1)
  1. CHILDRENS TYLENOL DISSOLVE PACKS, WILD BERRY FLAVOR [Suspect]
     Active Substance: ACETAMINOPHEN
     Indication: PYREXIA
     Dosage: 2 PACKS AT 12;24 PM TODAY THEN ANOTHER 2 PACKS AT 7 PM, AND ANOTHER 2 PACKS AT 2:44 AM CENTRAL TIME
     Route: 065
     Dates: start: 20191224

REACTIONS (2)
  - Incorrect dose administered [Unknown]
  - Inappropriate schedule of product administration [Unknown]

NARRATIVE: CASE EVENT DATE: 20191224
